FAERS Safety Report 8161028-1 (Version None)
Quarter: 2012Q1

REPORT INFORMATION
  Report Type: 
  Country: None (occurrence: None)
  Receive Date: 20120224
  Receipt Date: 20120215
  Transmission Date: 20120608
  Serious: Yes (Other)
  Sender: FDA-Public Use
  Company Number: FR-BIOGENIDEC-2012BI006084

PATIENT
  Sex: Female

DRUGS (2)
  1. CHRONIC SYSTEMIC CORTICOSTEROIDS [Concomitant]
  2. TYSABRI [Suspect]
     Indication: MULTIPLE SCLEROSIS
     Route: 042
     Dates: start: 20080708

REACTIONS (1)
  - LIVER DISORDER [None]
